FAERS Safety Report 17757721 (Version 5)
Quarter: 2025Q2

REPORT INFORMATION
  Report Type: Spontaneous
  Country: US (occurrence: US)
  Receive Date: 20200507
  Receipt Date: 20250610
  Transmission Date: 20250717
  Serious: Yes (Death, Hospitalization, Congenital Anomaly, Other)
  Sender: PURDUE
  Company Number: US-NAPPMUNDI-USA-2020-0152616

PATIENT
  Age: 62 Year
  Sex: Female
  Weight: 108 kg

DRUGS (9)
  1. OXYCONTIN [Suspect]
     Active Substance: OXYCODONE HYDROCHLORIDE
     Indication: Pain
     Route: 048
     Dates: start: 20151015
  2. DILAUDID [Suspect]
     Active Substance: HYDROMORPHONE HYDROCHLORIDE
     Indication: Product used for unknown indication
     Route: 048
  3. OXYCODONE HYDROCHLORIDE [Suspect]
     Active Substance: OXYCODONE HYDROCHLORIDE
     Indication: Pain
     Route: 048
     Dates: start: 20151015
  4. OXYCODONE HYDROCHLORIDE [Suspect]
     Active Substance: OXYCODONE HYDROCHLORIDE
     Indication: Product used for unknown indication
     Route: 048
  5. ACETAMINOPHEN\OXYCODONE HYDROCHLORIDE [Suspect]
     Active Substance: ACETAMINOPHEN\OXYCODONE HYDROCHLORIDE
     Indication: Product used for unknown indication
     Route: 048
  6. ACETAMINOPHEN\HYDROCODONE BITARTRATE [Suspect]
     Active Substance: ACETAMINOPHEN\HYDROCODONE BITARTRATE
     Indication: Product used for unknown indication
     Route: 048
  7. LYRICA [Suspect]
     Active Substance: PREGABALIN
     Indication: Product used for unknown indication
     Route: 065
  8. LYRICA [Suspect]
     Active Substance: PREGABALIN
     Route: 065
  9. FENTANYL [Suspect]
     Active Substance: FENTANYL
     Indication: Pain
     Route: 065

REACTIONS (21)
  - Death [Fatal]
  - Brain injury [Not Recovered/Not Resolved]
  - Hospitalisation [Unknown]
  - Fall [Not Recovered/Not Resolved]
  - Seroma [Unknown]
  - Surgery [Unknown]
  - Unresponsive to stimuli [Unknown]
  - Cellulitis [Unknown]
  - Transient ischaemic attack [Unknown]
  - Seizure [Unknown]
  - Congenital anomaly [Unknown]
  - Cardiac disorder [Unknown]
  - Delirium [Unknown]
  - Drug dependence [Not Recovered/Not Resolved]
  - Drug withdrawal syndrome [Not Recovered/Not Resolved]
  - Heart rate increased [Unknown]
  - Gait disturbance [Not Recovered/Not Resolved]
  - Learning disability [Unknown]
  - Developmental delay [Unknown]
  - Renal disorder [Unknown]
  - Infection [Unknown]

NARRATIVE: CASE EVENT DATE: 20160401
